FAERS Safety Report 18637400 (Version 2)
Quarter: 2020Q4

REPORT INFORMATION
  Report Type: Report from Study
  Country: US (occurrence: US)
  Receive Date: 20201218
  Receipt Date: 20201222
  Transmission Date: 20210114
  Serious: Yes (Death)
  Sender: FDA-Public Use
  Company Number: US-ALLERGAN-2048929US

PATIENT
  Sex: Female

DRUGS (1)
  1. CARIPRAZINE HCL 1.5MG CAP (011327X) [Suspect]
     Active Substance: CARIPRAZINE HYDROCHLORIDE
     Indication: PRODUCT USED FOR UNKNOWN INDICATION

REACTIONS (1)
  - Death [Fatal]
